FAERS Safety Report 4527335-6 (Version None)
Quarter: 2004Q4

REPORT INFORMATION
  Report Type: 
  Country: None (occurrence: None)
  Receive Date: 20041122
  Receipt Date: 20040916
  Transmission Date: 20050328
  Serious: Yes (Other)
  Sender: FDA-Public Use
  Company Number: 2004-0007388

PATIENT
  Age: 71 Year
  Sex: Male

DRUGS (6)
  1. HEPSERA [Suspect]
     Indication: HEPATITIS B
     Dosage: 10 MG, 1 IN 2 D ; 10 MG, 1 IN 1 D  :  ORAL
     Route: 048
     Dates: start: 20040401, end: 20040829
  2. HEPSERA [Suspect]
     Indication: HEPATITIS B
     Dosage: 10 MG, 1 IN 2 D ; 10 MG, 1 IN 1 D  :  ORAL
     Route: 048
     Dates: start: 20040830
  3. ALTACE (RAMIPRIL) [Concomitant]
  4. ZETIA [Concomitant]
  5. COUMADIN [Concomitant]
  6. COREG [Concomitant]

REACTIONS (2)
  - BLOOD CREATININE INCREASED [None]
  - HAEMOGLOBIN DECREASED [None]
